FAERS Safety Report 6906624-1 (Version None)
Quarter: 2010Q3

REPORT INFORMATION
  Report Type: 
  Country: None (occurrence: None)
  Receive Date: 20100804
  Receipt Date: 20100727
  Transmission Date: 20110219
  Serious: Yes (Hospitalization)
  Sender: FDA-Public Use
  Company Number: US-JNJFOC-20100501177

PATIENT
  Sex: Male
  Weight: 64 kg

DRUGS (14)
  1. DOXIL [Suspect]
     Indication: MYELOMA RECURRENCE
     Route: 042
  2. BORTEZOMIB [Suspect]
     Indication: MYELOMA RECURRENCE
     Route: 042
  3. CYCLOPHOSPHAMIDE [Suspect]
     Indication: MYELOMA RECURRENCE
     Route: 042
  4. DEXAMETHASONE [Suspect]
     Indication: MYELOMA RECURRENCE
     Route: 048
  5. ADVAIR DISKUS 100/50 [Concomitant]
     Dosage: 250.50UG
     Route: 055
  6. EFFEXOR [Concomitant]
  7. DUONEB [Concomitant]
     Dosage: 3-4 TIMES A DAY
     Route: 055
  8. LORAZEPAM [Concomitant]
     Indication: ANXIETY
  9. MIRTAZAPINE [Concomitant]
     Route: 048
  10. NEXIUM [Concomitant]
     Route: 048
  11. PROMETHAZINE [Concomitant]
     Route: 048
  12. SPIRIVA [Concomitant]
     Route: 055
  13. THEOPHYLLINE [Concomitant]
  14. VICODIN [Concomitant]

REACTIONS (2)
  - CHRONIC OBSTRUCTIVE PULMONARY DISEASE [None]
  - PNEUMONIA [None]
